FAERS Safety Report 4821633-4 (Version None)
Quarter: 2005Q4

REPORT INFORMATION
  Report Type: 
  Country: None (occurrence: None)
  Receive Date: 20051103
  Receipt Date: 20051103
  Transmission Date: 20060501
  Serious: Yes (Hospitalization)
  Sender: FDA-Public Use
  Company Number: None

PATIENT
  Age: 60 Year
  Sex: Male
  Weight: 45.3597 kg

DRUGS (12)
  1. DOCETAXEL 80 MG [Suspect]
     Indication: NEOPLASM MALIGNANT
     Dosage: 45 MG/M2  67 MG
     Dates: start: 20050705, end: 20051017
  2. OXALIPLATIN  100 MG [Suspect]
     Indication: NEOPLASM MALIGNANT
     Dosage: 100 MG/M2  149 MG
     Dates: start: 20050705, end: 20051017
  3. CYCLPHENZAPRINE [Concomitant]
  4. OMEPRAZONE [Concomitant]
  5. ALBUTEROL [Concomitant]
  6. SENNOSIDES [Concomitant]
  7. DUCOSATE [Concomitant]
  8. ONDANSETRON [Concomitant]
  9. DEXAMETHASONE [Concomitant]
  10. PROHLOROPERAZINE [Concomitant]
  11. MEGACE [Concomitant]
  12. ENSURE [Concomitant]

REACTIONS (3)
  - BLISTER [None]
  - DEVICE FAILURE [None]
  - PNEUMOTHORAX SPONTANEOUS TENSION [None]
